FAERS Safety Report 14120424 (Version 1)
Quarter: 2017Q4

REPORT INFORMATION
  Report Type: Spontaneous
  Country: US (occurrence: US)
  Receive Date: 20171024
  Receipt Date: 20171024
  Transmission Date: 20180321
  Serious: Yes (Other)
  Sender: FDA-Public Use
  Company Number: US-JNJFOC-20171017276

PATIENT
  Age: 33 Year
  Sex: Female
  Weight: 90.5 kg

DRUGS (1)
  1. XARELTO [Suspect]
     Active Substance: RIVAROXABAN
     Indication: PULMONARY EMBOLISM
     Dosage: IN THE MORNING WITH FOOD
     Route: 048
     Dates: start: 2014

REACTIONS (2)
  - Migraine [Recovered/Resolved]
  - Cerebral thrombosis [Unknown]

NARRATIVE: CASE EVENT DATE: 201706
